FAERS Safety Report 10530769 (Version 2)
Quarter: 2014Q4

REPORT INFORMATION
  Report Type: Spontaneous
  Country: CA (occurrence: CA)
  Receive Date: 20141021
  Receipt Date: 20141021
  Transmission Date: 20150528
  Serious: Yes (Other)
  Sender: FDA-Public Use
  Company Number: CA-GSKJP-KK201419566GSK2118436002

PATIENT
  Sex: Male

DRUGS (1)
  1. TAFINLAR [Suspect]
     Active Substance: DABRAFENIB MESYLATE
     Indication: METASTATIC MALIGNANT MELANOMA
     Dosage: 300 MG, QD
     Route: 065
     Dates: end: 20140814

REACTIONS (9)
  - Pain in extremity [Unknown]
  - Dyspnoea [Unknown]
  - Malaise [Unknown]
  - Disease progression [Unknown]
  - Cough [Unknown]
  - Pneumonia [Unknown]
  - Fatigue [Unknown]
  - Skin exfoliation [Unknown]
  - Pain [Unknown]
